FAERS Safety Report 5715653-5 (Version None)
Quarter: 2008Q2

REPORT INFORMATION
  Report Type: 
  Country: None (occurrence: None)
  Receive Date: 20080424
  Receipt Date: 20080416
  Transmission Date: 20081010
  Serious: Yes (Hospitalization)
  Sender: FDA-Public Use
  Company Number: FR-WYE-H02674208

PATIENT
  Sex: Male

DRUGS (8)
  1. EUPANTOL [Suspect]
     Route: 042
     Dates: start: 20080104, end: 20080118
  2. RIMIFON [Suspect]
     Route: 042
     Dates: start: 20080104, end: 20080116
  3. RIMIFON [Suspect]
     Route: 042
     Dates: start: 20080117, end: 20080118
  4. TIENAM [Concomitant]
     Dosage: UNKNOWN
  5. ETHAMBUTOL DIHYDROCHLORIDE [Suspect]
     Route: 042
     Dates: start: 20080104
  6. KEPPRA [Concomitant]
     Dosage: UNKNOWN
  7. BACTRIM [Suspect]
     Dosage: ^DAILY DOSE 1 DF^
     Route: 042
     Dates: start: 20080104, end: 20080118
  8. RIFADIN [Suspect]
     Route: 042
     Dates: start: 20080104

REACTIONS (2)
  - CYTOLYTIC HEPATITIS [None]
  - NEUTROPENIA [None]
